FAERS Safety Report 10170751 (Version 2)
Quarter: 2014Q2

REPORT INFORMATION
  Report Type: Spontaneous
  Country: US (occurrence: US)
  Receive Date: 20140514
  Receipt Date: 20140602
  Transmission Date: 20141212
  Serious: Yes (Hospitalization)
  Sender: FDA-Public Use
  Company Number: US-JNJFOC-20140501944

PATIENT
  Age: 51 Year
  Sex: Male
  Weight: 117.94 kg

DRUGS (14)
  1. DURAGESIC [Suspect]
     Indication: PAIN
     Route: 062
  2. DURAGESIC [Suspect]
     Indication: PRODUCT USED FOR UNKNOWN INDICATION
     Route: 062
  3. OXYCONTIN [Suspect]
     Indication: PAIN
     Route: 048
     Dates: end: 201306
  4. NEXIUM [Concomitant]
     Indication: GASTROOESOPHAGEAL REFLUX DISEASE
     Route: 048
     Dates: start: 2010
  5. CYMBALTA [Concomitant]
     Indication: NEURALGIA
     Route: 048
  6. CYMBALTA [Concomitant]
     Indication: NEURALGIA
     Route: 048
  7. CYMBALTA [Concomitant]
     Indication: NEURALGIA
     Route: 048
  8. CYMBALTA [Concomitant]
     Indication: DEPRESSION
     Route: 048
  9. CYMBALTA [Concomitant]
     Indication: DEPRESSION
     Route: 048
  10. CYMBALTA [Concomitant]
     Indication: DEPRESSION
     Route: 048
  11. LEVOTHYROXINE [Concomitant]
     Indication: THYROID DISORDER
     Route: 048
  12. LANTUS [Concomitant]
     Indication: DIABETES MELLITUS
     Route: 065
  13. HUMALOG [Concomitant]
     Route: 065
  14. LIPITOR [Concomitant]
     Route: 065

REACTIONS (16)
  - Osteoarthritis [Not Recovered/Not Resolved]
  - Bursitis [Not Recovered/Not Resolved]
  - Arthritis [Not Recovered/Not Resolved]
  - Depression [Not Recovered/Not Resolved]
  - Spinal operation [Unknown]
  - Nausea [Recovered/Resolved]
  - Drug dose omission [Recovered/Resolved]
  - Wrong technique in drug usage process [Unknown]
  - Feeling abnormal [Recovered/Resolved]
  - Abasia [Recovering/Resolving]
  - Back disorder [Recovering/Resolving]
  - Urinary incontinence [Recovered/Resolved]
  - Inflammation [Not Recovered/Not Resolved]
  - Nervous system disorder [Not Recovered/Not Resolved]
  - Product adhesion issue [Unknown]
  - Drug ineffective [Unknown]
